FAERS Safety Report 24996184 (Version 1)
Quarter: 2025Q1

REPORT INFORMATION
  Report Type: Spontaneous
  Country: US (occurrence: US)
  Receive Date: 20250221
  Receipt Date: 20250221
  Transmission Date: 20250409
  Serious: Yes (Death, Other)
  Sender: BRISTOL-MYERS SQUIBB COMPANY
  Company Number: US-BRISTOL-MYERS SQUIBB COMPANY-2025-024391

PATIENT
  Age: 80 Year
  Sex: Female

DRUGS (5)
  1. INREBIC [Suspect]
     Active Substance: FEDRATINIB HYDROCHLORIDE
     Indication: Myelofibrosis
     Dosage: TAKE 4 CAPSULES BY MOUTH EVERY DAY
     Route: 048
     Dates: start: 20220311
  2. CHOLECALCIFEROL [Concomitant]
     Active Substance: CHOLECALCIFEROL
  3. MAGNESIUM OXIDE [Concomitant]
     Active Substance: MAGNESIUM OXIDE
  4. MAPAP [Concomitant]
     Active Substance: ACETAMINOPHEN
  5. VITAMIN B-1 [THIAMINE HYDROCHLORIDE] [Concomitant]

REACTIONS (1)
  - Death [Fatal]
